FAERS Safety Report 9960749 (Version 1)
Quarter: 2014Q1

REPORT INFORMATION
  Report Type: Report from Study
  Country: US (occurrence: US)
  Receive Date: 20140305
  Receipt Date: 20140305
  Transmission Date: 20141002
  Serious: No
  Sender: FDA-Public Use
  Company Number: US-ABBVIE-13P-163-1109990-00

PATIENT
  Sex: Female
  Weight: 87.17 kg

DRUGS (13)
  1. HUMIRA [Suspect]
     Indication: PSORIASIS
     Dates: start: 2012, end: 2012
  2. HUMIRA [Suspect]
     Indication: PSORIATIC ARTHROPATHY
     Dates: start: 2012, end: 201301
  3. HUMIRA [Suspect]
     Dates: start: 201301
  4. METHOTREXATE [Suspect]
     Indication: PSORIASIS
  5. METHOTREXATE [Suspect]
     Indication: PSORIATIC ARTHROPATHY
  6. CELEBREX [Suspect]
     Indication: PSORIATIC ARTHROPATHY
  7. ARAVA [Suspect]
     Indication: PSORIATIC ARTHROPATHY
  8. UNNAMED STEROIDS [Suspect]
     Indication: PSORIASIS
  9. UNNAMED STEROIDS [Suspect]
     Indication: PSORIATIC ARTHROPATHY
  10. FOLIC ACID [Concomitant]
     Indication: PRODUCT USED FOR UNKNOWN INDICATION
  11. FLEXERIL [Concomitant]
     Indication: ARTHRITIS
  12. ADVAIR [Concomitant]
     Indication: ASTHMA
  13. PROVENTIL [Concomitant]
     Indication: ASTHMA

REACTIONS (8)
  - Pain [Unknown]
  - Psoriasis [Unknown]
  - Psoriasis [Not Recovered/Not Resolved]
  - Arthralgia [Not Recovered/Not Resolved]
  - Mobility decreased [Not Recovered/Not Resolved]
  - Fatigue [Not Recovered/Not Resolved]
  - Weight increased [Not Recovered/Not Resolved]
  - Inappropriate schedule of drug administration [Unknown]
